FAERS Safety Report 6540742-5 (Version None)
Quarter: 2010Q1

REPORT INFORMATION
  Report Type: 
  Country: None (occurrence: None)
  Receive Date: 20100118
  Receipt Date: 20100115
  Transmission Date: 20100710
  Serious: Yes (Other)
  Sender: FDA-Public Use
  Company Number: US-JNJFOC-20100100622

PATIENT
  Age: 86 Year
  Sex: Female
  Weight: 70.31 kg

DRUGS (11)
  1. TYLENOL (CAPLET) [Suspect]
     Route: 048
  2. TYLENOL (CAPLET) [Suspect]
     Indication: ARTHRITIS
     Route: 048
  3. METOPROLOL [Concomitant]
     Route: 048
  4. NORVASC [Concomitant]
     Route: 048
  5. LISINOPRIL [Concomitant]
     Route: 048
  6. LIPITOR [Concomitant]
  7. PROTONIX [Concomitant]
     Route: 048
  8. CALCIUM [Concomitant]
  9. IRON [Concomitant]
  10. CENTRUM SILVER [Concomitant]
  11. FISH OIL [Concomitant]

REACTIONS (3)
  - DIARRHOEA [None]
  - PRODUCT QUALITY ISSUE [None]
  - RECTAL HAEMORRHAGE [None]
